FAERS Safety Report 19653601 (Version 1)
Quarter: 2021Q3

REPORT INFORMATION
  Report Type: Report from Study
  Country: CA (occurrence: CA)
  Receive Date: 20210803
  Receipt Date: 20210803
  Transmission Date: 20211014
  Serious: Yes (Other)
  Sender: FDA-Public Use
  Company Number: CA-MYLANLABS-2021M1047272

PATIENT
  Age: 61 Year
  Sex: Female

DRUGS (1)
  1. HULIO [Suspect]
     Active Substance: ADALIMUMAB-FKJP
     Indication: PSORIATIC ARTHROPATHY
     Dosage: UNK

REACTIONS (5)
  - Malaise [Unknown]
  - Myalgia [Unknown]
  - Fatigue [Unknown]
  - Pain [Unknown]
  - Therapeutic product effect incomplete [Unknown]
